FAERS Safety Report 25926008 (Version 1)
Quarter: 2025Q4

REPORT INFORMATION
  Report Type: Spontaneous
  Country: US (occurrence: US)
  Receive Date: 20251015
  Receipt Date: 20251015
  Transmission Date: 20260118
  Serious: Yes (Other)
  Sender: AMNEAL
  Company Number: US-AMNEAL PHARMACEUTICALS-2025-AMRX-03910

PATIENT
  Age: 10 Year
  Sex: Male

DRUGS (2)
  1. CLONIDINE HYDROCHLORIDE [Suspect]
     Active Substance: CLONIDINE HYDROCHLORIDE
     Indication: Somatotropin stimulation test
     Dosage: 90 MICROGRAM
     Route: 048
  2. ARGININE [Suspect]
     Active Substance: ARGININE
     Indication: Somatotropin stimulation test
     Dosage: 9 G OF 10% L-ARGININE SOLUTION
     Route: 042

REACTIONS (4)
  - Haemorrhage urinary tract [Recovered/Resolved]
  - Pollakiuria [Unknown]
  - Dysuria [Unknown]
  - Abdominal pain [Unknown]
